FAERS Safety Report 15523655 (Version 1)
Quarter: 2018Q4

REPORT INFORMATION
  Report Type: Spontaneous
  Country: GB (occurrence: GB)
  Receive Date: 20181018
  Receipt Date: 20181018
  Transmission Date: 20190205
  Serious: Yes (Other)
  Sender: FDA-Public Use
  Company Number: GB-SUN PHARMACEUTICAL INDUSTRIES LTD-2018RR-188087

PATIENT
  Age: 61 Year
  Sex: Male

DRUGS (3)
  1. MODECATE [Concomitant]
     Active Substance: FLUPHENAZINE DECANOATE
     Indication: SCHIZOPHRENIA
     Dosage: 50 MG, 2/WEEK
     Route: 030
     Dates: start: 1998, end: 2018
  2. RISPERIDONE. [Suspect]
     Active Substance: RISPERIDONE
     Indication: SCHIZOPHRENIA
     Dosage: TITRATION REGIME
     Route: 048
     Dates: start: 20180906, end: 20180913
  3. PROCYCLIDINE [Concomitant]
     Active Substance: PROCYCLIDINE
     Indication: SCHIZOPHRENIA
     Dosage: 15 MG, DAILY
     Route: 048
     Dates: start: 1998

REACTIONS (1)
  - Swollen tongue [Recovered/Resolved]

NARRATIVE: CASE EVENT DATE: 20180913
